FAERS Safety Report 23636499 (Version 2)
Quarter: 2024Q3

REPORT INFORMATION
  Report Type: Spontaneous
  Country: JP (occurrence: JP)
  Receive Date: 20240315
  Receipt Date: 20240718
  Transmission Date: 20241016
  Serious: Yes (Life-Threatening, Hospitalization, Other)
  Sender: PFIZER
  Company Number: JP-PFIZER INC-PV202400035024

PATIENT
  Age: 72 Year
  Sex: Male

DRUGS (5)
  1. GEMCITABINE HYDROCHLORIDE [Suspect]
     Active Substance: GEMCITABINE HYDROCHLORIDE
     Indication: Bladder cancer
     Dosage: 1000 MG/M2, CYCLIC,  OVER 30 MIN ON DAYS 1 AND 8, REPEATED EVERY 3 WEEKS
     Route: 042
  2. GEMCITABINE HYDROCHLORIDE [Suspect]
     Active Substance: GEMCITABINE HYDROCHLORIDE
     Dosage: REDUCED BY 20% AND ADMINISTERED ON DAY 1 ONLY
  3. CARBOPLATIN [Suspect]
     Active Substance: CARBOPLATIN
     Indication: Bladder cancer
     Dosage: UNK, CYCLIC, OVER 60 MIN ON DAY 1
     Route: 042
  4. CARBOPLATIN [Suspect]
     Active Substance: CARBOPLATIN
     Dosage: REDUCED BY 20% AND ADMINISTERED ON DAY 1 ONLY
  5. DEXAMETHASONE [Concomitant]
     Active Substance: DEXAMETHASONE
     Indication: Vomiting
     Dosage: ADMINISTERED ON DAYS 1 AND 8.

REACTIONS (3)
  - Anaemia [Unknown]
  - Febrile neutropenia [Recovering/Resolving]
  - Thrombocytopenia [Unknown]
